FAERS Safety Report 17816238 (Version 2)
Quarter: 2020Q2

REPORT INFORMATION
  Report Type: Spontaneous
  Country: US (occurrence: US)
  Receive Date: 20200522
  Receipt Date: 20200527
  Transmission Date: 20200714
  Serious: No
  Sender: FDA-Public Use
  Company Number: US-SA-2020SA132003

PATIENT
  Age: 61 Year
  Sex: Female

DRUGS (1)
  1. TOUJEO [Suspect]
     Active Substance: INSULIN GLARGINE
     Indication: TYPE 1 DIABETES MELLITUS
     Dosage: 12 IU, QD(AT NIGHT)
     Route: 065

REACTIONS (3)
  - Pruritus [Unknown]
  - Injection site pain [Unknown]
  - Skin exfoliation [Unknown]
